FAERS Safety Report 21800626 (Version 1)
Quarter: 2022Q4

REPORT INFORMATION
  Report Type: Spontaneous
  Country: US (occurrence: None)
  Receive Date: 20221229
  Receipt Date: 20221229
  Transmission Date: 20230113
  Serious: Yes (Other)
  Sender: FDA-Public Use
  Company Number: None

PATIENT
  Age: 41 Year
  Sex: Female
  Weight: 90 kg

DRUGS (3)
  1. PROPOFOL [Suspect]
     Active Substance: PROPOFOL
     Indication: Surgery
  2. IRON [Concomitant]
     Active Substance: IRON
  3. VITAMINS [Concomitant]
     Active Substance: VITAMINS

REACTIONS (5)
  - Respiratory arrest [None]
  - Gingival disorder [None]
  - Angiopathy [None]
  - Necrosis [None]
  - Product quality issue [None]

NARRATIVE: CASE EVENT DATE: 20220725
